FAERS Safety Report 18664241 (Version 4)
Quarter: 2021Q3

REPORT INFORMATION
  Report Type: Spontaneous
  Country: GB (occurrence: GB)
  Receive Date: 20201225
  Receipt Date: 20210818
  Transmission Date: 20211014
  Serious: Yes (Other)
  Sender: FDA-Public Use
  Company Number: GB-BIOVITRUM-2020GB7874

PATIENT
  Age: 50 Year
  Sex: Male

DRUGS (65)
  1. COCODAMOL [Concomitant]
     Active Substance: ACETAMINOPHEN\CODEINE PHOSPHATE
     Dates: start: 2015
  2. SIMVASTATIN. [Concomitant]
     Active Substance: SIMVASTATIN
     Dates: start: 2018
  3. ALENDRONIC ACID [Concomitant]
     Active Substance: ALENDRONIC ACID
     Dates: start: 2015
  4. DIAZEPAM. [Concomitant]
     Active Substance: DIAZEPAM
     Dates: start: 2013
  5. SOLIFENACIN [Concomitant]
     Active Substance: SOLIFENACIN
     Dates: start: 2020
  6. ORFADIN [Suspect]
     Active Substance: NITISINONE
     Indication: ALKAPTONURIA
     Dates: start: 2012
  7. NAPROXEN. [Concomitant]
     Active Substance: NAPROXEN
     Dosage: PRN
     Dates: start: 2020
  8. SIMVASTATIN. [Concomitant]
     Active Substance: SIMVASTATIN
     Dates: start: 2019
  9. OLMESARTAN [Concomitant]
     Active Substance: OLMESARTAN
     Dates: start: 2015
  10. OLMESARTAN [Concomitant]
     Active Substance: OLMESARTAN
     Dates: start: 2016
  11. ALENDRONIC ACID [Concomitant]
     Active Substance: ALENDRONIC ACID
     Dates: start: 2013
  12. NAPROXEN. [Concomitant]
     Active Substance: NAPROXEN
     Dates: start: 2017
  13. NAPROXEN. [Concomitant]
     Active Substance: NAPROXEN
     Dates: start: 2018
  14. OMEPRAZOLE. [Concomitant]
     Active Substance: OMEPRAZOLE
     Dates: start: 2013
  15. OMEPRAZOLE. [Concomitant]
     Active Substance: OMEPRAZOLE
     Dates: start: 2014
  16. OMEPRAZOLE. [Concomitant]
     Active Substance: OMEPRAZOLE
     Dates: start: 2017
  17. OMEPRAZOLE. [Concomitant]
     Active Substance: OMEPRAZOLE
     Dates: start: 2020
  18. ALENDRONIC ACID [Concomitant]
     Active Substance: ALENDRONIC ACID
     Dates: start: 2016
  19. ALENDRONIC ACID [Concomitant]
     Active Substance: ALENDRONIC ACID
     Dates: start: 2017
  20. CALCIUM AND VIT D [Concomitant]
     Active Substance: CALCIUM\VITAMIN D
     Dates: start: 2015
  21. MULTI VITAMIN [Concomitant]
     Active Substance: VITAMINS
     Dates: start: 2015
  22. MULTI VITAMIN [Concomitant]
     Active Substance: VITAMINS
     Dates: start: 2017
  23. MAGNESIUM SALICYLATE. [Concomitant]
     Active Substance: MAGNESIUM SALICYLATE
     Dates: start: 2015
  24. NAPROXEN. [Concomitant]
     Active Substance: NAPROXEN
     Dates: start: 2012
  25. OLMESARTAN [Concomitant]
     Active Substance: OLMESARTAN
     Dates: start: 2013
  26. OLMESARTAN [Concomitant]
     Active Substance: OLMESARTAN
     Dates: start: 2017
  27. OMEPRAZOLE. [Concomitant]
     Active Substance: OMEPRAZOLE
     Dates: start: 2012
  28. OMEPRAZOLE. [Concomitant]
     Active Substance: OMEPRAZOLE
     Dates: start: 2018
  29. SOLIFENACIN [Concomitant]
     Active Substance: SOLIFENACIN
     Dates: start: 2019
  30. NAPROXEN. [Concomitant]
     Active Substance: NAPROXEN
     Dates: start: 2016
  31. COCODAMOL [Concomitant]
     Active Substance: ACETAMINOPHEN\CODEINE PHOSPHATE
     Dates: start: 2012
  32. SIMVASTATIN. [Concomitant]
     Active Substance: SIMVASTATIN
     Dates: start: 2012
  33. SIMVASTATIN. [Concomitant]
     Active Substance: SIMVASTATIN
     Dates: start: 2017
  34. OLMESARTAN [Concomitant]
     Active Substance: OLMESARTAN
     Dates: start: 2012
  35. OLMESARTAN [Concomitant]
     Active Substance: OLMESARTAN
     Dates: start: 2018
  36. OLMESARTAN [Concomitant]
     Active Substance: OLMESARTAN
     Dates: start: 2020
  37. OMEPRAZOLE. [Concomitant]
     Active Substance: OMEPRAZOLE
     Dates: start: 2015
  38. CALCIUM AND VIT D [Concomitant]
     Active Substance: CALCIUM\VITAMIN D
     Dates: start: 2017
  39. CALCIUM AND VIT D [Concomitant]
     Active Substance: CALCIUM\VITAMIN D
     Dosage: 500G/400IU
     Dates: start: 2018
  40. CALCIUM AND VIT D [Concomitant]
     Active Substance: CALCIUM\VITAMIN D
     Dates: start: 2020
  41. MULTI VITAMIN [Concomitant]
     Active Substance: VITAMINS
     Dates: start: 2016
  42. MAGNESIUM SALICYLATE. [Concomitant]
     Active Substance: MAGNESIUM SALICYLATE
     Dates: start: 2016
  43. NAPROXEN. [Concomitant]
     Active Substance: NAPROXEN
     Dates: start: 2019
  44. COCODAMOL [Concomitant]
     Active Substance: ACETAMINOPHEN\CODEINE PHOSPHATE
     Dates: start: 2016
  45. SIMVASTATIN. [Concomitant]
     Active Substance: SIMVASTATIN
     Dates: start: 2020
  46. OLMESARTAN [Concomitant]
     Active Substance: OLMESARTAN
     Dates: start: 2014
  47. ALENDRONIC ACID [Concomitant]
     Active Substance: ALENDRONIC ACID
  48. CALCIUM AND VIT D [Concomitant]
     Active Substance: CALCIUM\VITAMIN D
     Dates: start: 2013
  49. CALCIUM AND VIT D [Concomitant]
     Active Substance: CALCIUM\VITAMIN D
     Dates: start: 2016
  50. FERROUS FUMARATE [Concomitant]
     Active Substance: FERROUS FUMARATE
     Dates: start: 2016
  51. MORPHINE SULPHATE [Concomitant]
     Active Substance: MORPHINE SULFATE
     Dates: start: 2012
  52. NAPROXEN. [Concomitant]
     Active Substance: NAPROXEN
     Dates: start: 2015
  53. SIMVASTATIN. [Concomitant]
     Active Substance: SIMVASTATIN
     Dates: start: 2013
  54. SIMVASTATIN. [Concomitant]
     Active Substance: SIMVASTATIN
     Dates: start: 2014
  55. SIMVASTATIN. [Concomitant]
     Active Substance: SIMVASTATIN
     Dates: start: 2016
  56. OMEPRAZOLE. [Concomitant]
     Active Substance: OMEPRAZOLE
     Dates: start: 2016
  57. FERROUS FUMARATE [Concomitant]
     Active Substance: FERROUS FUMARATE
     Dates: start: 2015
  58. ADCAL D3 [Concomitant]
     Active Substance: CALCIUM CARBONATE\CHOLECALCIFEROL
     Dates: start: 2019
  59. SIMVASTATIN. [Concomitant]
     Active Substance: SIMVASTATIN
     Dates: start: 2015
  60. OLMESARTAN [Concomitant]
     Active Substance: OLMESARTAN
     Dates: start: 2019
  61. OMEPRAZOLE. [Concomitant]
     Active Substance: OMEPRAZOLE
     Dates: start: 2019
  62. ALENDRONIC ACID [Concomitant]
     Active Substance: ALENDRONIC ACID
     Dates: start: 2018
  63. CALCIUM AND VIT D [Concomitant]
     Active Substance: CALCIUM\VITAMIN D
     Dates: start: 2014
  64. MULTI VITAMIN [Concomitant]
     Active Substance: VITAMINS
     Dates: start: 2013
  65. CODEINE [Concomitant]
     Active Substance: CODEINE
     Dosage: PRN
     Dates: start: 2020

REACTIONS (3)
  - Lenticular opacities [Not Recovered/Not Resolved]
  - Amino acid level increased [Not Recovered/Not Resolved]
  - Cataract [Not Recovered/Not Resolved]

NARRATIVE: CASE EVENT DATE: 2012
